FAERS Safety Report 9604699 (Version 2)
Quarter: 2013Q4

REPORT INFORMATION
  Report Type: Spontaneous
  Country: US (occurrence: US)
  Receive Date: 20131008
  Receipt Date: 20131230
  Transmission Date: 20140711
  Serious: No
  Sender: FDA-Public Use
  Company Number: US-PFIZER INC-2013284205

PATIENT
  Age: 53 Year
  Sex: Female

DRUGS (8)
  1. XELJANZ [Suspect]
     Dosage: 5 MG, 2X/DAY
     Route: 048
  2. VALSARTAN / HCTZ [Concomitant]
     Dosage: 160-12.5
  3. HYDROCHLOROTHIAZIDE [Concomitant]
     Dosage: 12.5 MG
  4. VENLAFAXINE [Concomitant]
     Dosage: 37.5MG
  5. CELEBREX [Concomitant]
     Dosage: 200MG
  6. GLUCOVANCE [Concomitant]
     Dosage: 5-500 MG
  7. GABAPENTIN [Concomitant]
     Dosage: 100MG
  8. FOLIC ACID [Concomitant]
     Dosage: UNK

REACTIONS (1)
  - Eructation [Unknown]
